FAERS Safety Report 14111688 (Version 1)
Quarter: 2017Q4

REPORT INFORMATION
  Report Type: Spontaneous
  Country: US (occurrence: None)
  Receive Date: 20171020
  Receipt Date: 20171020
  Transmission Date: 20180321
  Serious: Yes (Hospitalization)
  Sender: FDA-Public Use
  Company Number: None

PATIENT
  Age: 63 Year
  Sex: Female

DRUGS (30)
  1. BACTRIM DS [Concomitant]
     Active Substance: SULFAMETHOXAZOLE\TRIMETHOPRIM
  2. PERCOCET [Concomitant]
     Active Substance: ACETAMINOPHEN\OXYCODONE HYDROCHLORIDE
  3. PRILOSEC [Concomitant]
     Active Substance: OMEPRAZOLE MAGNESIUM
  4. TRIAMT/HCTZ [Concomitant]
     Active Substance: HYDROCHLOROTHIAZIDE\TRIAMTERENE
  5. VITAMIN D [Concomitant]
     Active Substance: CHOLECALCIFEROL
  6. VITAMIN E [Concomitant]
     Active Substance: .ALPHA.-TOCOPHEROL
  7. WARFARIN [Concomitant]
     Active Substance: WARFARIN
  8. XELJANZ [Suspect]
     Active Substance: TOFACITINIB CITRATE
     Indication: RHEUMATOID ARTHRITIS
     Route: 048
     Dates: start: 20130716
  9. ASPIRIN CHW [Concomitant]
  10. BIOTIN [Concomitant]
     Active Substance: BIOTIN
  11. IBUPROFEN. [Concomitant]
     Active Substance: IBUPROFEN
  12. OMEGA-3-6-9 [Concomitant]
  13. REMICADE [Concomitant]
     Active Substance: INFLIXIMAB
  14. VITAMIN B COMPLEX [Concomitant]
     Active Substance: CYANOCOBALAMIN\DEXPANTHENOL\NIACINAMIDE\PYRIDOXINE HYDROCHLORIDE\RIBOFLAVIN 5^-PHOSPHATE SODIUM\THIAMINE HYDROCHLORIDE\VITAMIN B COMPLEX
  15. CALTRATE [Concomitant]
     Active Substance: CALCIUM CARBONATE
  16. DOXYCYCL HYC [Concomitant]
  17. PREDNISONE. [Concomitant]
     Active Substance: PREDNISONE
  18. ACTONEL [Concomitant]
     Active Substance: RISEDRONATE SODIUM
  19. ARAVA [Concomitant]
     Active Substance: LEFLUNOMIDE
  20. CEFAZOLIN [Concomitant]
     Active Substance: CEFAZOLIN
  21. GLUCOS/CHOND [Concomitant]
  22. MULTI-VITAMIN [Concomitant]
     Active Substance: .ALPHA.-TOCOPHEROL ACETATE, DL-\ASCORBIC ACID\CYANOCOBALAMIN\FLUORIDE ION\FOLIC ACID\NIACIN\PYRIDOXINE\RIBOFLAVIN\THIAMINE\VITAMIN A\VITAMIN D
  23. OMEPRAZOLE. [Concomitant]
     Active Substance: OMEPRAZOLE
  24. SIMPONI [Concomitant]
     Active Substance: GOLIMUMAB
  25. CYMBALTA [Concomitant]
     Active Substance: DULOXETINE HYDROCHLORIDE
  26. HUMIRA [Concomitant]
     Active Substance: ADALIMUMAB
  27. ATENOLOL. [Concomitant]
     Active Substance: ATENOLOL
  28. SPIRONOLACT [Concomitant]
     Active Substance: SPIRONOLACTONE
  29. VITAMIN C [Concomitant]
     Active Substance: ASCORBIC ACID
  30. VITA-PLUS E [Concomitant]

REACTIONS (2)
  - Drug dose omission [None]
  - Surgery [None]

NARRATIVE: CASE EVENT DATE: 2017
